FAERS Safety Report 4919537-1 (Version None)
Quarter: 2006Q1

REPORT INFORMATION
  Report Type: 
  Country: None (occurrence: None)
  Receive Date: 20060222
  Receipt Date: 20050413
  Transmission Date: 20060701
  Serious: Yes (Life-Threatening, Hospitalization, Disabling)
  Sender: FDA-Public Use
  Company Number: US-MERCK-0504USA01996

PATIENT
  Age: 54 Year
  Sex: Male

DRUGS (2)
  1. PEPCID [Suspect]
     Route: 048
     Dates: start: 19970101
  2. VALIUM [Concomitant]
     Route: 065

REACTIONS (6)
  - CHOLECYSTECTOMY [None]
  - FEELING ABNORMAL [None]
  - MOVEMENT DISORDER [None]
  - PALPITATIONS [None]
  - PANCREATITIS [None]
  - PRESCRIBED OVERDOSE [None]
